FAERS Safety Report 5652966-X (Version None)
Quarter: 2008Q1

REPORT INFORMATION
  Report Type: 
  Country: None (occurrence: None)
  Receive Date: 20080131
  Receipt Date: 20071017
  Transmission Date: 20080703
  Serious: No
  Sender: FDA-Public Use
  Company Number: US200710004538

PATIENT
  Age: 54 Year
  Sex: Female

DRUGS (2)
  1. BYETTA [Suspect]
     Dosage: 5 UG, 2/D, SUBCUTANEOUS
     Route: 058
  2. SALINE (DEMO EXENATIDE PEN) (SALINE EXENATIDE DEMONSTRATION PEN)) PEN, [Concomitant]

REACTIONS (1)
  - DRUG DISPENSING ERROR [None]
